FAERS Safety Report 25617345 (Version 1)
Quarter: 2025Q3

REPORT INFORMATION
  Report Type: Spontaneous
  Country: AU (occurrence: AU)
  Receive Date: 20250729
  Receipt Date: 20250729
  Transmission Date: 20251021
  Serious: Yes (Other)
  Sender: AMGEN
  Company Number: AU-AMGEN-AUSSP2025144215

PATIENT
  Age: 68 Year
  Sex: Male

DRUGS (1)
  1. DARBEPOETIN ALFA [Suspect]
     Active Substance: DARBEPOETIN ALFA
     Indication: Anaemia macrocytic
     Dosage: 150 MICROGRAM, Q2WK
     Route: 065

REACTIONS (2)
  - Myelodysplastic syndrome [Unknown]
  - Haemoglobin decreased [Recovered/Resolved]
